FAERS Safety Report 8217608-8 (Version None)
Quarter: 2012Q1

REPORT INFORMATION
  Report Type: 
  Country: None (occurrence: None)
  Receive Date: 20120319
  Receipt Date: 20120319
  Transmission Date: 20120608
  Serious: No
  Sender: FDA-Public Use
  Company Number: None

PATIENT
  Age: 53 Year
  Sex: Male
  Weight: 94.347 kg

DRUGS (1)
  1. LATUDA [Suspect]
     Indication: BIPOLAR DISORDER
     Dosage: 60.0 MG
     Route: 048
     Dates: start: 20110720, end: 20120317

REACTIONS (2)
  - MALE ORGASMIC DISORDER [None]
  - FRUSTRATION [None]
